FAERS Safety Report 22075534 (Version 2)
Quarter: 2023Q2

REPORT INFORMATION
  Report Type: Spontaneous
  Country: US (occurrence: US)
  Receive Date: 20230308
  Receipt Date: 20230427
  Transmission Date: 20230721
  Serious: No
  Sender: FDA-Public Use
  Company Number: US-BRISTOL-MYERS SQUIBB COMPANY-2023-032096

PATIENT
  Age: 67 Year
  Sex: Female

DRUGS (2)
  1. REVLIMID [Suspect]
     Active Substance: LENALIDOMIDE
     Indication: Plasma cell myeloma
     Dosage: FREQ: 21 DAYS ON, 7 OFF
     Route: 048
     Dates: start: 20220127
  2. REVLIMID [Suspect]
     Active Substance: LENALIDOMIDE
     Dosage: FREQ: 21 DAYS ON, 7 OFF
     Route: 048
     Dates: start: 202103

REACTIONS (7)
  - Tooth infection [Unknown]
  - Asthma [Unknown]
  - Cough [Unknown]
  - Fall [Unknown]
  - Diarrhoea [Unknown]
  - Injury [Unknown]
  - Oral infection [Unknown]
